FAERS Safety Report 7198843-7 (Version None)
Quarter: 2010Q4

REPORT INFORMATION
  Report Type: 
  Country: None (occurrence: None)
  Receive Date: 20101227
  Receipt Date: 20101216
  Transmission Date: 20110411
  Serious: Yes (Death, Hospitalization)
  Sender: FDA-Public Use
  Company Number: US-SANOFI-AVENTIS-2010SA076792

PATIENT
  Sex: Female

DRUGS (1)
  1. FERRLECIT [Suspect]
     Route: 065
     Dates: start: 20101203

REACTIONS (14)
  - ARTHRALGIA [None]
  - CARDIAC FAILURE [None]
  - DEATH [None]
  - DIZZINESS [None]
  - DYSPNOEA [None]
  - HYPERSENSITIVITY [None]
  - HYPERTENSION [None]
  - HYPOXIA [None]
  - LUNG INFECTION [None]
  - METABOLIC ACIDOSIS [None]
  - NAUSEA [None]
  - OEDEMA PERIPHERAL [None]
  - PAIN IN EXTREMITY [None]
  - RHABDOMYOLYSIS [None]
